FAERS Safety Report 7371023-8 (Version None)
Quarter: 2011Q1

REPORT INFORMATION
  Report Type: 
  Country: None (occurrence: None)
  Receive Date: 20110321
  Receipt Date: 20110321
  Transmission Date: 20110831
  Serious: Yes (Other)
  Sender: FDA-Public Use
  Company Number: None

PATIENT
  Sex: Female
  Weight: 61.2356 kg

DRUGS (1)
  1. TRAZODONE HCL [Suspect]
     Indication: DEPRESSION
     Dosage: TAKE 1 TABLET DAILY @BEDTIME 1 PO
     Route: 048
     Dates: start: 20110313, end: 20110319

REACTIONS (1)
  - ENURESIS [None]
